APPROVED DRUG PRODUCT: PHOTREXA VISCOUS IN DEXTRAN 20%/PHOTREXA
Active Ingredient: RIBOFLAVIN 5'-PHOSPHATE SODIUM
Strength: EQ 0.146% BASE/ML;EQ 0.146% BASE/ML
Dosage Form/Route: SOLUTION/DROPS;OPHTHALMIC
Application: N203324 | Product #001
Applicant: GLAUKOS CORP
Approved: Apr 15, 2016 | RLD: Yes | RS: Yes | Type: RX